FAERS Safety Report 17644152 (Version 7)
Quarter: 2020Q4

REPORT INFORMATION
  Report Type: Report from Study
  Country: CO (occurrence: CO)
  Receive Date: 20200408
  Receipt Date: 20201216
  Transmission Date: 20210113
  Serious: Yes (Life-Threatening, Hospitalization, Other)
  Sender: FDA-Public Use
  Company Number: NVSC2020CO094673

PATIENT
  Sex: Female

DRUGS (2)
  1. FEMARA [Suspect]
     Active Substance: LETROZOLE
     Indication: BREAST CANCER METASTATIC
     Dosage: 2.5 MG, QD
     Route: 048
  2. KISQALI [Suspect]
     Active Substance: RIBOCICLIB
     Indication: BREAST CANCER METASTATIC
     Dosage: 600 MG, QD
     Route: 048

REACTIONS (21)
  - Burning sensation [Unknown]
  - Nausea [Unknown]
  - Inflammation [Unknown]
  - Dehydration [Unknown]
  - Diarrhoea [Unknown]
  - Abdominal pain upper [Unknown]
  - Vomiting [Unknown]
  - Choking sensation [Unknown]
  - Lung disorder [Unknown]
  - Eye pruritus [Unknown]
  - Metastasis [Unknown]
  - Back pain [Unknown]
  - Near death experience [Unknown]
  - Abdominal discomfort [Unknown]
  - Pleural effusion [Unknown]
  - Sitting disability [Unknown]
  - Depression [Unknown]
  - Vision blurred [Unknown]
  - Bone pain [Unknown]
  - Pain [Unknown]
  - Thrombosis [Unknown]
